FAERS Safety Report 8669314 (Version 3)
Quarter: 2012Q4

REPORT INFORMATION
  Report Type: 
  Country: DK (occurrence: DK)
  Receive Date: 20120717
  Receipt Date: 20120910
  Transmission Date: 20130627
  Serious: Yes (Hospitalization, Disabling)
  Sender: FDA-Public Use
  Company Number: DK-009507513-1207DNK005115

PATIENT

DRUGS (17)
  1. ZOCOR [Suspect]
     Indication: HYPERCHOLESTEROLAEMIA
     Dosage: 40 mg, Once
     Route: 048
     Dates: start: 20040101, end: 200903
  2. FURIX [Concomitant]
     Indication: DIURETIC THERAPY
     Dosage: 40 mg
     Route: 048
  3. FURIX [Concomitant]
     Dosage: 40 mg
     Route: 048
  4. FURIX [Concomitant]
     Dosage: 40 mg
     Route: 048
  5. KALEORID [Concomitant]
     Indication: MINERAL SUPPLEMENTATION
     Dosage: 750 mg
     Route: 048
  6. KALEORID [Concomitant]
     Dosage: 750 mg
     Route: 048
  7. KALEORID [Concomitant]
     Dosage: 750 mg
     Route: 048
  8. MOXONIDIN ACTAVIS [Concomitant]
     Indication: HYPERTENSION
     Dosage: 0.2 mg
     Route: 048
  9. ANCOZAN [Concomitant]
     Indication: HYPERTENSION
     Dosage: 100 mg
     Route: 048
  10. ANCOZAN [Concomitant]
     Dosage: 100 mg
     Route: 048
  11. ANCOZAN [Concomitant]
     Dosage: 100 mg
     Route: 048
  12. IBUMETIN [Concomitant]
     Indication: PAIN
     Dosage: 600 mg
     Route: 048
  13. IBUMETIN [Concomitant]
     Dosage: 600 mg
     Route: 048
  14. IBUMETIN [Concomitant]
     Dosage: 600 mg
     Route: 048
  15. AMLODIPINE [Concomitant]
     Indication: HYPERTENSION
     Dosage: 5 mg
     Route: 048
  16. CARVEDILOL [Concomitant]
     Indication: HYPERTENSION
     Dosage: 25 mg
     Route: 048
  17. LANSOPRAZOL ORIFARM [Concomitant]
     Indication: GASTROOESOPHAGEAL REFLUX DISEASE
     Dosage: 30 mg, Once
     Route: 048

REACTIONS (5)
  - Gout [Recovered/Resolved]
  - Arthralgia [Not Recovered/Not Resolved]
  - Pain in extremity [Not Recovered/Not Resolved]
  - Oedema peripheral [Not Recovered/Not Resolved]
  - Myalgia [Not Recovered/Not Resolved]
